FAERS Safety Report 11459733 (Version 1)
Quarter: 2015Q3

REPORT INFORMATION
  Report Type: Spontaneous
  Country: US (occurrence: US)
  Receive Date: 20150904
  Receipt Date: 20150904
  Transmission Date: 20151125
  Serious: Yes (Life-Threatening)
  Sender: FDA-Public Use
  Company Number: US-ASTRAZENECA-2015SE83375

PATIENT
  Sex: Male

DRUGS (5)
  1. METFORMIN [Concomitant]
     Active Substance: METFORMIN HYDROCHLORIDE
     Route: 048
  2. METFORMIN [Concomitant]
     Active Substance: METFORMIN HYDROCHLORIDE
     Route: 048
  3. FARXIGA [Suspect]
     Active Substance: DAPAGLIFLOZIN PROPANEDIOL
     Route: 048
  4. GLYBURIDE. [Concomitant]
     Active Substance: GLYBURIDE
     Route: 048
  5. METFORMIN [Concomitant]
     Active Substance: METFORMIN HYDROCHLORIDE
     Route: 048

REACTIONS (12)
  - Diabetic ketoacidosis [Unknown]
  - Asthenia [Unknown]
  - Blood pressure decreased [Unknown]
  - Decreased appetite [Unknown]
  - Blood glucose increased [Unknown]
  - Weight decreased [Unknown]
  - Vomiting [Unknown]
  - Urine ketone body [Unknown]
  - Heart rate increased [Unknown]
  - Gastrointestinal motility disorder [Unknown]
  - Dizziness [Unknown]
  - Feeling abnormal [Unknown]
